FAERS Safety Report 6998487-3 (Version None)
Quarter: 2010Q3

REPORT INFORMATION
  Report Type: 
  Country: None (occurrence: None)
  Receive Date: 20100920
  Receipt Date: 20100723
  Transmission Date: 20110219
  Serious: No
  Sender: FDA-Public Use
  Company Number: US-ASTRAZENECA-2009UW17562

PATIENT
  Age: 17581 Day
  Sex: Female
  Weight: 90.7 kg

DRUGS (11)
  1. SEROQUEL [Suspect]
     Indication: BIPOLAR DISORDER
     Route: 048
     Dates: start: 20020101
  2. SEROQUEL [Suspect]
     Indication: MANIA
     Route: 048
     Dates: start: 20020101
  3. SEROQUEL [Suspect]
     Indication: INSOMNIA
     Route: 048
     Dates: start: 20020101
  4. SEROQUEL [Suspect]
     Route: 048
     Dates: start: 20070306
  5. SEROQUEL [Suspect]
     Route: 048
     Dates: start: 20070306
  6. SEROQUEL [Suspect]
     Route: 048
     Dates: start: 20070306
  7. ZYPREXA [Concomitant]
     Indication: BIPOLAR DISORDER
     Dates: start: 20010101
  8. ZYPREXA [Concomitant]
     Indication: MANIA
     Dates: start: 20010101
  9. ZYPREXA [Concomitant]
     Indication: INSOMNIA
     Dates: start: 20010101
  10. WELLBUTRIN [Concomitant]
     Dates: start: 20070306
  11. DEPAKOTE [Concomitant]
     Dates: start: 20070306

REACTIONS (5)
  - BLOOD CHOLESTEROL INCREASED [None]
  - BLOOD TRIGLYCERIDES INCREASED [None]
  - HYPERLIPIDAEMIA [None]
  - OBESITY [None]
  - TYPE 2 DIABETES MELLITUS [None]
